FAERS Safety Report 21618679 (Version 2)
Quarter: 2022Q4

REPORT INFORMATION
  Report Type: Spontaneous
  Country: PR (occurrence: PR)
  Receive Date: 20221119
  Receipt Date: 20221130
  Transmission Date: 20230113
  Serious: Yes (Other)
  Sender: FDA-Public Use
  Company Number: PR-JNJFOC-20221137606

PATIENT
  Sex: Male

DRUGS (1)
  1. ERLEADA [Suspect]
     Active Substance: APALUTAMIDE
     Indication: Prostate cancer
     Route: 048
     Dates: start: 2021, end: 20221111

REACTIONS (4)
  - Drug ineffective [Unknown]
  - Diabetes mellitus inadequate control [Unknown]
  - Prostatic specific antigen increased [Unknown]
  - Malaise [Unknown]
